FAERS Safety Report 11652747 (Version 3)
Quarter: 2015Q4

REPORT INFORMATION
  Report Type: Report from Study
  Country: US (occurrence: US)
  Receive Date: 20151022
  Receipt Date: 20151109
  Transmission Date: 20160304
  Serious: Yes (Death, Hospitalization)
  Sender: FDA-Public Use
  Company Number: US-JNJFOC-20150317635

PATIENT
  Sex: Male
  Weight: 67.13 kg

DRUGS (18)
  1. DEXAMETHASONE. [Concomitant]
     Active Substance: DEXAMETHASONE
     Route: 048
  2. OPANA [Concomitant]
     Active Substance: OXYMORPHONE HYDROCHLORIDE
     Dosage: AS NEEDED
     Route: 048
  3. PHENERGAN [Concomitant]
     Active Substance: PROMETHAZINE HYDROCHLORIDE
     Indication: NAUSEA
     Dosage: AS NEEDED
     Route: 054
  4. ZYLOPRIM [Concomitant]
     Active Substance: ALLOPURINOL
     Dosage: AFTER BREAKFAST
     Route: 048
  5. SENNOSIDE [Concomitant]
     Active Substance: SENNOSIDES
     Route: 048
  6. NORVASC [Concomitant]
     Active Substance: AMLODIPINE BESYLATE
     Route: 048
  7. XANAX [Concomitant]
     Active Substance: ALPRAZOLAM
     Dosage: AS NEEDED FOR SLEEP
     Route: 048
  8. DOCUSATE PLUS SENNA [Concomitant]
     Active Substance: DOCUSATE SODIUM\SENNOSIDES A AND B
     Dosage: 8.6-50 MG
     Route: 048
  9. DIOVAN [Concomitant]
     Active Substance: VALSARTAN
     Route: 048
  10. ONDANSETRON [Concomitant]
     Active Substance: ONDANSETRON
     Indication: NAUSEA
     Dosage: AS NEEDED
     Route: 048
  11. LEVAQUIN [Concomitant]
     Active Substance: LEVOFLOXACIN
     Route: 048
  12. PRILOSEC [Concomitant]
     Active Substance: OMEPRAZOLE MAGNESIUM
     Route: 048
  13. ZANAFLEX [Concomitant]
     Active Substance: TIZANIDINE HYDROCHLORIDE
     Indication: INSOMNIA
     Route: 048
  14. PHENERGAN [Concomitant]
     Active Substance: PROMETHAZINE HYDROCHLORIDE
     Indication: NAUSEA
     Route: 048
  15. XARELTO [Suspect]
     Active Substance: RIVAROXABAN
     Indication: SUBCLAVIAN VEIN THROMBOSIS
     Route: 048
     Dates: start: 20141029, end: 20150402
  16. COLACE [Concomitant]
     Active Substance: DOCUSATE SODIUM
     Route: 048
  17. MSIR [Concomitant]
     Active Substance: MORPHINE SULFATE
     Indication: PAIN
     Dosage: AS NEEDED
     Route: 048
  18. MS CONTIN [Concomitant]
     Active Substance: MORPHINE SULFATE
     Route: 048

REACTIONS (1)
  - Death [Fatal]
